FAERS Safety Report 20194258 (Version 2)
Quarter: 2022Q2

REPORT INFORMATION
  Report Type: Spontaneous
  Country: US (occurrence: US)
  Receive Date: 20211216
  Receipt Date: 20220418
  Transmission Date: 20220720
  Serious: No
  Sender: FDA-Public Use
  Company Number: US-PFIZER INC-202101234213

PATIENT
  Age: 61 Year
  Sex: Male

DRUGS (6)
  1. INLYTA [Suspect]
     Active Substance: AXITINIB
     Dosage: 2X/DAY (IN THE MORNING AND EVENING)
     Dates: start: 2020
  2. INLYTA [Suspect]
     Active Substance: AXITINIB
     Dosage: 5 MG, 2X/DAY
     Dates: start: 20210401
  3. INLYTA [Suspect]
     Active Substance: AXITINIB
     Dosage: TAKE 1 TABLET ONCE DAILY ALTERNATING WITH 1 TABLET TWICE DAILY
  4. ATORVASTATIN CALCIUM [Concomitant]
     Active Substance: ATORVASTATIN CALCIUM
     Dosage: UNK
  5. AMLODIPINE BESYLATE [Concomitant]
     Active Substance: AMLODIPINE BESYLATE
     Dosage: UNK
  6. ASPIRIN [Concomitant]
     Active Substance: ASPIRIN
     Dosage: UNK

REACTIONS (2)
  - Off label use [Unknown]
  - Epistaxis [Unknown]

NARRATIVE: CASE EVENT DATE: 20210101
